FAERS Safety Report 17049673 (Version 1)
Quarter: 2019Q4

REPORT INFORMATION
  Report Type: Spontaneous
  Country: RU (occurrence: RU)
  Receive Date: 20191119
  Receipt Date: 20191119
  Transmission Date: 20200122
  Serious: Yes (Life-Threatening, Hospitalization)
  Sender: FDA-Public Use
  Company Number: RU-ASTRAZENECA-2019SF64030

PATIENT
  Age: 46 Year
  Sex: Male

DRUGS (2)
  1. BRILINTA [Suspect]
     Active Substance: TICAGRELOR
     Indication: ACUTE CORONARY SYNDROME
     Route: 048
     Dates: start: 20191112, end: 20191113
  2. BRILINTA [Suspect]
     Active Substance: TICAGRELOR
     Indication: ACUTE MYOCARDIAL INFARCTION
     Route: 048
     Dates: start: 20191112, end: 20191113

REACTIONS (3)
  - Drug ineffective [Unknown]
  - Vascular stent thrombosis [Recovering/Resolving]
  - Vascular stent thrombosis [Unknown]

NARRATIVE: CASE EVENT DATE: 20191113
